FAERS Safety Report 6722780-2 (Version None)
Quarter: 2010Q2

REPORT INFORMATION
  Report Type: 
  Country: None (occurrence: None)
  Receive Date: 20100511
  Receipt Date: 20100503
  Transmission Date: 20101027
  Serious: Yes (Hospitalization, Disabling)
  Sender: FDA-Public Use
  Company Number: OSCN-NO-0903S-0139

PATIENT
  Age: 36 Year
  Sex: Male

DRUGS (13)
  1. OMNISCAN [Suspect]
     Indication: RENAL TRANSPLANT
     Dosage: 30 ML, SINGLE DOSE
     Dates: start: 20020429, end: 20020429
  2. GADOLINIUM (UNSPECIFIED) [Suspect]
     Indication: RENAL TRANSPLANT
     Dates: start: 20010601, end: 20010601
  3. GADOLINIUM (UNSPECIFIED) [Suspect]
     Indication: RENAL TRANSPLANT
     Dates: start: 20041014, end: 20041014
  4. MEGLUMINE GADOTERATE (DOTAREM) [Concomitant]
  5. CALCIUM ACETATE [Concomitant]
  6. DIALYSIS VITAMINS [Concomitant]
  7. METOPROLOL TARTRATE [Concomitant]
  8. ACETYLSALICYLIC ACID [Concomitant]
  9. INSULIN [Concomitant]
  10. DILTIAZEM HCL [Concomitant]
  11. LEVOTHYROXINE SODIUM [Concomitant]
  12. OMEPRAZOLE [Concomitant]
  13. SACCHARATED IRON OXIDE (VENOFER) [Concomitant]

REACTIONS (9)
  - GAIT DISTURBANCE [None]
  - JOINT STIFFNESS [None]
  - JOINT SWELLING [None]
  - LUNG DISORDER [None]
  - NEPHROGENIC SYSTEMIC FIBROSIS [None]
  - PRURITUS [None]
  - SCLERODERMA [None]
  - SKIN ATROPHY [None]
  - SKIN OEDEMA [None]
